FAERS Safety Report 7097846-0 (Version None)
Quarter: 2010Q4

REPORT INFORMATION
  Report Type: 
  Country: None (occurrence: None)
  Receive Date: 20101112
  Receipt Date: 20101011
  Transmission Date: 20110411
  Serious: Yes (Other)
  Sender: FDA-Public Use
  Company Number: US-BAYER-201019936NA

PATIENT
  Age: 29 Year
  Sex: Female
  Weight: 113 kg

DRUGS (2)
  1. YASMIN [Suspect]
     Indication: PRODUCT USED FOR UNKNOWN INDICATION
     Dates: start: 20040101, end: 20050101
  2. YASMIN [Suspect]
     Dates: start: 20060601

REACTIONS (1)
  - BILIARY COLIC [None]
